FAERS Safety Report 15989096 (Version 11)
Quarter: 2021Q1

REPORT INFORMATION
  Report Type: Report from Study
  Country: ES (occurrence: ES)
  Receive Date: 20190221
  Receipt Date: 20210217
  Transmission Date: 20210419
  Serious: Yes (Hospitalization, Other)
  Sender: FDA-Public Use
  Company Number: ES-ROCHE-2266272

PATIENT
  Age: 60 Year
  Sex: Male
  Weight: 79 kg

DRUGS (18)
  1. METOCLOPRAMIDE. [Concomitant]
     Active Substance: METOCLOPRAMIDE
     Indication: PREMEDICATION
     Dates: start: 20190416, end: 20190416
  2. PEMETREXED. [Concomitant]
     Active Substance: PEMETREXED
     Dates: start: 2019
  3. ATEZOLIZUMAB. [Suspect]
     Active Substance: ATEZOLIZUMAB
     Indication: NEOPLASM
     Dosage: DATE OF MOST RECENT DOSE OF ATEZOLIZUMAB PRIOR TO ADVERSE EVENT (AE) AND SAE ONSET: 22/JAN/2019 AT 1
     Route: 041
     Dates: start: 20190122
  4. KETOROLAC [Concomitant]
     Active Substance: KETOROLAC TROMETHAMINE
     Indication: PYREXIA
     Dates: start: 20190123, end: 20190123
  5. OMEPRAZOLE. [Concomitant]
     Active Substance: OMEPRAZOLE
     Indication: GASTROINTESTINAL DISORDER PROPHYLAXIS
     Dates: start: 20190215
  6. PARACETAMOL [Concomitant]
     Active Substance: ACETAMINOPHEN
     Dates: start: 20190213, end: 20190213
  7. BEVACIZUMAB. [Concomitant]
     Active Substance: BEVACIZUMAB
     Dates: start: 2019
  8. BEVACIZUMAB. [Concomitant]
     Active Substance: BEVACIZUMAB
     Dates: start: 2019, end: 2020
  9. PEMETREXED. [Concomitant]
     Active Substance: PEMETREXED
     Dates: start: 2019, end: 2020
  10. CETIRIZINE [Concomitant]
     Active Substance: CETIRIZINE HYDROCHLORIDE
     Indication: PRURITUS
     Dates: start: 20190212
  11. PARACETAMOL [Concomitant]
     Active Substance: ACETAMINOPHEN
     Dates: start: 20190123, end: 20190124
  12. PARACETAMOL [Concomitant]
     Active Substance: ACETAMINOPHEN
     Dates: start: 20190212, end: 20190212
  13. IBUPROFEN. [Concomitant]
     Active Substance: IBUPROFEN
     Indication: ASTHENIA
     Dates: start: 20190213, end: 20190213
  14. IBUPROFEN. [Concomitant]
     Active Substance: IBUPROFEN
     Indication: PYREXIA
  15. PARACETAMOL [Concomitant]
     Active Substance: ACETAMINOPHEN
     Indication: PREMEDICATION
     Dates: start: 20190305, end: 20190305
  16. RO6874281 (FAP IL2V MAB) [Suspect]
     Active Substance: SIMLUKAFUSP ALFA
     Indication: NEOPLASM
     Dosage: MOST RECENT RO6874281 ADMINISTERED PRIOR TO ADVERSE EVENT (AE) AND SAE ONSET: 22/JAN/2019 AT 4:12 PM
     Route: 042
     Dates: start: 20190122
  17. PARACETAMOL [Concomitant]
     Active Substance: ACETAMINOPHEN
     Indication: CHILLS
     Dates: start: 20190416, end: 20190416
  18. PARACETAMOL [Concomitant]
     Active Substance: ACETAMINOPHEN
     Indication: PYREXIA
     Dates: start: 20190124, end: 20190124

REACTIONS (2)
  - Drug-induced liver injury [Recovered/Resolved]
  - Incorrect dose administered [Unknown]

NARRATIVE: CASE EVENT DATE: 20190122
